FAERS Safety Report 5304163-5 (Version None)
Quarter: 2007Q2

REPORT INFORMATION
  Report Type: 
  Country: None (occurrence: None)
  Receive Date: 20070423
  Receipt Date: 20070412
  Transmission Date: 20071010
  Serious: Yes (Other)
  Sender: FDA-Public Use
  Company Number: PHBS2007IE02063

PATIENT
  Age: 40 Year
  Sex: Male

DRUGS (15)
  1. ETOPOSIDE [Suspect]
     Indication: TERATOMA
     Dosage: 120MG/M2
     Route: 065
  2. SANDIMMUNE [Suspect]
     Indication: RENAL TRANSPLANT
     Dosage: UNK, UNK
     Route: 048
     Dates: start: 19950101
  3. CARBOPLATIN [Suspect]
  4. ALLOPURINOL [Concomitant]
     Dosage: 300MG
  5. COLCHICINE [Concomitant]
     Dosage: 500MG ALTERNATE DAYS
  6. PREDNISOLONE [Concomitant]
     Dosage: 5 MG, QD
  7. NIFEDIPINE [Concomitant]
     Dosage: 10 MG, BID
  8. OMEPRAZOLE [Concomitant]
     Dosage: 20 MG AT NIGHT
  9. ATORVASTATIN CALCIUM [Concomitant]
     Dosage: 20MG AT NIGHT
  10. FRUSEMIDE [Concomitant]
     Dosage: 20 MG, QD
  11. EMULSIFYING OINTMENT [Concomitant]
  12. PROTOPIC [Concomitant]
     Dosage: 0.1%
     Route: 061
  13. TYFLEX [Concomitant]
     Dosage: UNK, PRN
  14. GALFER [Concomitant]
     Dosage: UNK, BID
  15. EMULAVE [Concomitant]

REACTIONS (6)
  - BONE MARROW FAILURE [None]
  - BONE MARROW TOXICITY [None]
  - METASTASES TO LUNG [None]
  - NEUTROPENIC SEPSIS [None]
  - RENAL IMPAIRMENT [None]
  - TERATOMA [None]
